FAERS Safety Report 20329502 (Version 1)
Quarter: 2022Q1

REPORT INFORMATION
  Report Type: Other
  Country: IT (occurrence: IT)
  Receive Date: 20220112
  Receipt Date: 20220112
  Transmission Date: 20220423
  Serious: Yes (Death, Other)
  Sender: FDA-Public Use
  Company Number: IT-Teikoku Pharma USA-TPU2022-00081

PATIENT
  Age: 41 Year
  Sex: Male

DRUGS (6)
  1. LIDOCAINE [Suspect]
     Active Substance: LIDOCAINE
     Indication: Product used for unknown indication
     Route: 065
  2. PROMAZINE [Suspect]
     Active Substance: PROMAZINE
     Indication: Product used for unknown indication
     Route: 065
  3. BENZOYLECGONINE [Suspect]
     Active Substance: BENZOYLECGONINE
     Indication: Product used for unknown indication
     Route: 065
  4. COCAINE [Suspect]
     Active Substance: COCAINE
     Indication: Product used for unknown indication
     Route: 065
  5. METHADONE HYDROCHLORIDE [Suspect]
     Active Substance: METHADONE HYDROCHLORIDE
     Indication: Product used for unknown indication
     Route: 065
  6. PHENACETIN [Suspect]
     Active Substance: PHENACETIN
     Indication: Product used for unknown indication
     Route: 065

REACTIONS (7)
  - Death [Fatal]
  - Toxicity to various agents [Fatal]
  - Pulmonary haemorrhage [Unknown]
  - Pulmonary oedema [Unknown]
  - Pneumoconiosis [Unknown]
  - Pulmonary congestion [Unknown]
  - Myocardial fibrosis [Unknown]
